FAERS Safety Report 7361651-8 (Version None)
Quarter: 2011Q1

REPORT INFORMATION
  Report Type: 
  Country: None (occurrence: None)
  Receive Date: 20110318
  Receipt Date: 20110309
  Transmission Date: 20110831
  Serious: Yes (Hospitalization)
  Sender: FDA-Public Use
  Company Number: CN-ASTRAZENECA-2010SE48777

PATIENT
  Age: 81 Year
  Sex: Female

DRUGS (6)
  1. METHOXYPHENAMINE [Concomitant]
  2. BETALOC ZOK [Suspect]
     Indication: HYPERTENSION
     Route: 048
  3. GLOBULIN [Suspect]
     Dosage: ONCE
     Route: 042
  4. CEFOXITIN [Concomitant]
  5. PLENDIL [Suspect]
     Indication: HYPERTENSION
     Route: 048
     Dates: end: 20101014
  6. AMBROXOL [Concomitant]

REACTIONS (6)
  - HYPOURICAEMIA [None]
  - VIITH NERVE PARALYSIS [None]
  - CARDIOMEGALY [None]
  - RENAL FAILURE [None]
  - TREMOR [None]
  - PLEURAL EFFUSION [None]
